FAERS Safety Report 14945830 (Version 8)
Quarter: 2019Q2

REPORT INFORMATION
  Report Type: Report from Study
  Country: GB (occurrence: GB)
  Receive Date: 20180529
  Receipt Date: 20190514
  Transmission Date: 20190711
  Serious: Yes (Death, Hospitalization)
  Sender: FDA-Public Use
  Company Number: PHHO2018GB005806

PATIENT
  Age: 60 Year
  Sex: Male
  Weight: 74 kg

DRUGS (6)
  1. CODEINE PHOSPHATE [Concomitant]
     Active Substance: CODEINE PHOSPHATE
     Indication: DIARRHOEA
     Dosage: 30 MG, QD
     Route: 048
     Dates: start: 20180423
  2. EXTRACORPOREAL PHOTOPHERESIS (METHOXSALEN) [Suspect]
     Active Substance: METHOXSALEN
     Dosage: BIW
     Route: 050
     Dates: start: 20180430
  3. DEXIMUNE [Concomitant]
     Active Substance: CYCLOSPORINE
     Indication: GRAFT VERSUS HOST DISEASE
     Dosage: 100 MG, BID
     Route: 048
     Dates: start: 20180427
  4. EXTRACORPOREAL PHOTOPHERESIS (METHOXSALEN) [Suspect]
     Active Substance: METHOXSALEN
     Dosage: QW
     Route: 050
     Dates: start: 20180507
  5. EXTRACORPOREAL PHOTOPHERESIS (METHOXSALEN) [Suspect]
     Active Substance: METHOXSALEN
     Indication: ACUTE GRAFT VERSUS HOST DISEASE
     Dosage: BIW
     Route: 050
     Dates: start: 20180425, end: 20180426
  6. MEDRONE [Concomitant]
     Active Substance: METHYLPREDNISOLONE
     Indication: GRAFT VERSUS HOST DISEASE
     Dosage: 160 MG, QD
     Route: 042
     Dates: start: 20180427

REACTIONS (1)
  - Graft versus host disease [Fatal]

NARRATIVE: CASE EVENT DATE: 20180427
